FAERS Safety Report 16671387 (Version 2)
Quarter: 2020Q4

REPORT INFORMATION
  Report Type: Report from Study
  Country: None (occurrence: US)
  Receive Date: 20190806
  Receipt Date: 20201020
  Transmission Date: 20210113
  Serious: Yes (Other)
  Sender: FDA-Public Use
  Company Number: US-ABBVIE-19K-163-2874357-00

PATIENT
  Age: 36 Year
  Sex: Female

DRUGS (2)
  1. HUMIRA [Suspect]
     Active Substance: ADALIMUMAB
     Indication: UVEITIS
  2. HUMIRA [Suspect]
     Active Substance: ADALIMUMAB
     Indication: SARCOIDOSIS
     Route: 058
     Dates: start: 2013

REACTIONS (5)
  - Tinnitus [Unknown]
  - Deafness [Unknown]
  - Exposure during pregnancy [Unknown]
  - Cholestasis [Unknown]
  - Live birth [Unknown]

NARRATIVE: CASE EVENT DATE: 201906
